FAERS Safety Report 16554090 (Version 1)
Quarter: 2019Q3

REPORT INFORMATION
  Report Type: Spontaneous
  Country: US (occurrence: US)
  Receive Date: 20190710
  Receipt Date: 20190710
  Transmission Date: 20191004
  Serious: Yes (Hospitalization)
  Sender: FDA-Public Use
  Company Number: US-FRESENIUS KABI-FK201907519

PATIENT
  Age: 83 Year
  Sex: Female

DRUGS (7)
  1. DAPTOMYCIN (MANUFACTURER UNKNOWN) [Suspect]
     Active Substance: DAPTOMYCIN
     Indication: STAPHYLOCOCCAL INFECTION
     Route: 065
  2. CEFTAROLINE [Suspect]
     Active Substance: CEFTAROLINE
     Indication: STAPHYLOCOCCAL INFECTION
     Dosage: ON HOSPITAL DAY 4
  3. VANCOMYCIN [Suspect]
     Active Substance: VANCOMYCIN
     Indication: STAPHYLOCOCCAL INFECTION
     Route: 065
  4. DAPTOMYCIN (MANUFACTURER UNKNOWN) [Suspect]
     Active Substance: DAPTOMYCIN
     Dosage: ON HOSPITAL DAY 15
     Route: 065
  5. CEFTAROLINE [Suspect]
     Active Substance: CEFTAROLINE
     Route: 065
  6. DAPTOMYCIN (MANUFACTURER UNKNOWN) [Suspect]
     Active Substance: DAPTOMYCIN
     Indication: ENDOCARDITIS
     Route: 065
  7. VANCOMYCIN [Suspect]
     Active Substance: VANCOMYCIN
     Route: 065

REACTIONS (4)
  - Renal failure [Recovered/Resolved]
  - Hypertransaminasaemia [Recovered/Resolved]
  - Rash [Recovered/Resolved]
  - Eosinophilia [Recovered/Resolved]
